FAERS Safety Report 6128727-4 (Version None)
Quarter: 2009Q1

REPORT INFORMATION
  Report Type: 
  Country: None (occurrence: None)
  Receive Date: 20090323
  Receipt Date: 20090129
  Transmission Date: 20090719
  Serious: Yes (Hospitalization)
  Sender: FDA-Public Use
  Company Number: US-PFIZER INC-2009151594

PATIENT
  Sex: Male
  Weight: 79.365 kg

DRUGS (8)
  1. LYRICA [Suspect]
     Indication: PAIN
     Dosage: UNK
     Route: 048
     Dates: start: 20071101, end: 20071201
  2. HUMIRA [Suspect]
     Indication: CROHN'S DISEASE
     Dosage: 160 MG, STARTER DOSE
     Route: 058
     Dates: start: 20070801, end: 20080904
  3. HUMIRA [Suspect]
     Dosage: 80 MG, 1X/DAY
     Route: 058
  4. HUMIRA [Suspect]
     Dosage: 40 MG,1 IN 2 WK
     Route: 058
     Dates: start: 20080904
  5. DRUG, UNSPECIFIED [Concomitant]
     Indication: HYPERTENSION
  6. RABEPRAZOLE SODIUM [Concomitant]
     Indication: HYPERCHLORHYDRIA
     Dosage: UNK
     Route: 048
  7. DRUG, UNSPECIFIED [Concomitant]
     Indication: DEPRESSION
  8. DRUG, UNSPECIFIED [Concomitant]
     Indication: SLEEP DISORDER THERAPY

REACTIONS (4)
  - INTESTINAL OBSTRUCTION [None]
  - SKIN INJURY [None]
  - SMALL INTESTINAL STENOSIS [None]
  - WEIGHT INCREASED [None]
